FAERS Safety Report 5132046-2 (Version None)
Quarter: 2006Q4

REPORT INFORMATION
  Report Type: 
  Country: None (occurrence: None)
  Receive Date: 20061017
  Receipt Date: 20061004
  Transmission Date: 20070319
  Serious: Yes (Other)
  Sender: FDA-Public Use
  Company Number: 2006123339

PATIENT
  Sex: Male

DRUGS (3)
  1. BEXTRA [Suspect]
  2. CELEBREX [Suspect]
  3. VIOXX [Suspect]
     Dates: start: 19990701

REACTIONS (2)
  - CARDIOVASCULAR DISORDER [None]
  - POLYTRAUMATISM [None]
